FAERS Safety Report 8004525-1 (Version None)
Quarter: 2011Q4

REPORT INFORMATION
  Report Type: 
  Country: None (occurrence: None)
  Receive Date: 20111223
  Receipt Date: 20111216
  Transmission Date: 20120403
  Serious: Yes (Other)
  Sender: FDA-Public Use
  Company Number: US-GENZYME-CERZ-1002347

PATIENT

DRUGS (2)
  1. CEREZYME [Suspect]
     Indication: GAUCHER'S DISEASE
     Dosage: 58 U/KG, Q4W
     Route: 042
  2. CEREZYME [Suspect]
     Dosage: 58 U/KG, Q2W
     Route: 042
     Dates: start: 19940630

REACTIONS (1)
  - DEMENTIA ALZHEIMER'S TYPE [None]
